FAERS Safety Report 10017562 (Version 1)
Quarter: 2014Q1

REPORT INFORMATION
  Report Type: Spontaneous
  Country: US (occurrence: US)
  Receive Date: 20140318
  Receipt Date: 20140318
  Transmission Date: 20141002
  Serious: Yes (Death)
  Sender: FDA-Public Use
  Company Number: US-BRISTOL-MYERS SQUIBB COMPANY-17343153

PATIENT
  Age: 59 Year
  Sex: Male
  Weight: 58.7 kg

DRUGS (1)
  1. ERBITUX [Suspect]
     Indication: HEAD AND NECK CANCER
     Dosage: LAST DOSE:14DEC2012?TOTAL DOSES:10

REACTIONS (1)
  - Death [Fatal]
